FAERS Safety Report 5976004-4 (Version None)
Quarter: 2008Q4

REPORT INFORMATION
  Report Type: 
  Country: None (occurrence: None)
  Receive Date: 20081202
  Receipt Date: 20081125
  Transmission Date: 20090506
  Serious: Yes (Other)
  Sender: FDA-Public Use
  Company Number: PHHY2008BR29808

PATIENT
  Age: 20 Year
  Sex: Female
  Weight: 50 kg

DRUGS (3)
  1. TEGRETOL [Suspect]
     Indication: CONVULSION
     Dosage: 200 MG, QD
     Route: 048
     Dates: start: 19980101
  2. TEGRETOL [Suspect]
     Dosage: 200 MG, UNK
  3. LIORESAL [Concomitant]
     Indication: PHYSIOTHERAPY
     Dosage: 1 TABLET DAILY
     Route: 048
     Dates: start: 19980101

REACTIONS (8)
  - ABDOMINAL PAIN UPPER [None]
  - CONVULSION [None]
  - CYANOSIS [None]
  - DYSPEPSIA [None]
  - EXTREMITY CONTRACTURE [None]
  - HYPOTONIA [None]
  - INSOMNIA [None]
  - RETCHING [None]
